FAERS Safety Report 20697195 (Version 1)
Quarter: 2022Q2

REPORT INFORMATION
  Report Type: Spontaneous
  Country: US (occurrence: None)
  Receive Date: 20220408
  Receipt Date: 20220408
  Transmission Date: 20220721
  Serious: Yes (Death)
  Sender: FDA-Public Use
  Company Number: None

PATIENT
  Age: 57 Year

DRUGS (9)
  1. JULUCA [Suspect]
     Active Substance: DOLUTEGRAVIR SODIUM\RILPIVIRINE HYDROCHLORIDE
  2. JULUCA [Concomitant]
     Active Substance: DOLUTEGRAVIR SODIUM\RILPIVIRINE HYDROCHLORIDE
  3. AMIODIPINE [Concomitant]
  4. CLOPIDOGREL [Concomitant]
     Active Substance: CLOPIDOGREL BISULFATE
  5. HYDROCHLOROTHIAZIDE [Concomitant]
     Active Substance: HYDROCHLOROTHIAZIDE
  6. LABETALOL HYDROCHLORIDE [Concomitant]
     Active Substance: LABETALOL HYDROCHLORIDE
  7. PRAVASTATIN [Concomitant]
     Active Substance: PRAVASTATIN
  8. TRESIBA [Concomitant]
     Active Substance: INSULIN DEGLUDEC
  9. VALSARTAN [Concomitant]
     Active Substance: VALSARTAN

REACTIONS (1)
  - Death [None]

NARRATIVE: CASE EVENT DATE: 20220407
